FAERS Safety Report 9144293 (Version 2)
Quarter: 2013Q2

REPORT INFORMATION
  Report Type: Report from Study
  Country: US (occurrence: US)
  Receive Date: 20130306
  Receipt Date: 20130507
  Transmission Date: 20140414
  Serious: Yes (Hospitalization, Other)
  Sender: FDA-Public Use
  Company Number: US-ABBOTT-13P-163-1055966-00

PATIENT
  Age: 50 Year
  Sex: Female
  Weight: 118.49 kg

DRUGS (34)
  1. HUMIRA [Suspect]
     Indication: RHEUMATOID ARTHRITIS
     Dosage: 40 MG DAY 1 AND DAY 15
     Dates: start: 20121213, end: 20121227
  2. VICODIN [Suspect]
     Indication: COUGH
  3. SYMBICORT [Concomitant]
     Indication: PULMONARY HYPERTENSION
  4. SYMBICORT [Concomitant]
     Indication: ASTHMA
  5. RHINOCORT [Concomitant]
     Indication: HYPERSENSITIVITY
  6. LASIX [Concomitant]
     Indication: OEDEMA PERIPHERAL
  7. POTASSIUM [Concomitant]
     Indication: DRUG THERAPY
  8. FOLIC ACID [Concomitant]
     Indication: CARDIAC DISORDER
  9. LEFLUNOMIDE [Concomitant]
     Indication: RHEUMATOID ARTHRITIS
  10. TRIBENZOR [Concomitant]
     Indication: HYPERTENSION
  11. LEVOXYL [Concomitant]
     Indication: THYROID DISORDER
  12. PEPCID [Concomitant]
     Indication: GASTROOESOPHAGEAL REFLUX DISEASE
  13. LANTIS [Concomitant]
     Indication: DIABETES MELLITUS
  14. HUMALOG [Concomitant]
     Indication: DIABETES MELLITUS
  15. ACTOPLUS MET [Concomitant]
     Indication: DIABETES MELLITUS
  16. TRAMADOL [Concomitant]
     Indication: PAIN
  17. OXYCODONE [Concomitant]
     Indication: PANCREATITIS CHRONIC
  18. CARAFATE [Concomitant]
     Indication: PANCREATITIS CHRONIC
  19. PHENERGAN [Concomitant]
     Indication: PANCREATITIS CHRONIC
  20. CLARITIN [Concomitant]
     Indication: HYPERSENSITIVITY
  21. FLUCONAZOLE [Concomitant]
     Indication: VULVOVAGINAL MYCOTIC INFECTION
  22. PRADAXA [Concomitant]
     Indication: FACTOR V INHIBITION
  23. PANTOPRAZOLE [Concomitant]
     Indication: GASTRIC DISORDER
     Dates: start: 2013
  24. COMBIVENT [Concomitant]
     Indication: ASTHMA
  25. ARAVA [Concomitant]
     Indication: ARTHRITIS
  26. OXYGEN [Concomitant]
     Indication: PRODUCT USED FOR UNKNOWN INDICATION
     Dosage: DURING THE DAY
  27. OXYGEN [Concomitant]
     Dosage: CPAP AT NIGHT
  28. HYDROXYZINE [Concomitant]
     Indication: PRURITUS
  29. DOXEPIN [Concomitant]
     Indication: PRURITUS
  30. PATADAY [Concomitant]
     Indication: HYPERSENSITIVITY
  31. LYRICA [Concomitant]
     Indication: NEUROPATHY PERIPHERAL
  32. MULTIVITAMIN [Concomitant]
     Indication: PRODUCT USED FOR UNKNOWN INDICATION
  33. VITAMIN C [Concomitant]
     Indication: PRODUCT USED FOR UNKNOWN INDICATION
  34. VITAMIN D NOS [Concomitant]
     Indication: PRODUCT USED FOR UNKNOWN INDICATION

REACTIONS (17)
  - Lung disorder [Unknown]
  - Thrombosis [Unknown]
  - Pulmonary embolism [Unknown]
  - Asthenia [Unknown]
  - Pyrexia [Recovered/Resolved]
  - Productive cough [Recovered/Resolved]
  - Cough [Recovering/Resolving]
  - Vomiting [Recovering/Resolving]
  - Vomiting [Recovering/Resolving]
  - Diarrhoea [Recovered/Resolved]
  - Dyspnoea [Recovered/Resolved]
  - Rash [Not Recovered/Not Resolved]
  - Influenza [Unknown]
  - Vomiting [Recovered/Resolved]
  - Pancreatitis [Recovered/Resolved]
  - Wound [Not Recovered/Not Resolved]
  - Peripheral vascular disorder [Not Recovered/Not Resolved]
